FAERS Safety Report 7233884-2 (Version None)
Quarter: 2011Q1

REPORT INFORMATION
  Report Type: 
  Country: None (occurrence: None)
  Receive Date: 20110119
  Receipt Date: 20100216
  Transmission Date: 20110831
  Serious: No
  Sender: FDA-Public Use
  Company Number: US-TEVA-204505USA

PATIENT
  Sex: Male
  Weight: 83.082 kg

DRUGS (3)
  1. COPAXONE [Suspect]
     Indication: MULTIPLE SCLEROSIS
     Route: 058
     Dates: start: 20081201
  2. TRAMADOL [Concomitant]
  3. CITALOPRAM HYDROBROMIDE [Concomitant]

REACTIONS (6)
  - HYPERHIDROSIS [None]
  - URTICARIA [None]
  - VISUAL IMPAIRMENT [None]
  - CHEST DISCOMFORT [None]
  - SWELLING [None]
  - SYNCOPE [None]
